FAERS Safety Report 11212424 (Version 2)
Quarter: 2015Q3

REPORT INFORMATION
  Report Type: Spontaneous
  Country: US (occurrence: US)
  Receive Date: 20150623
  Receipt Date: 20150703
  Transmission Date: 20151125
  Serious: Yes (Other)
  Sender: FDA-Public Use
  Company Number: US-ASTRAZENECA-2014SE71176

PATIENT
  Age: 20527 Day
  Sex: Female
  Weight: 94.3 kg

DRUGS (20)
  1. TRAMADOL HCL [Concomitant]
     Active Substance: TRAMADOL HYDROCHLORIDE
     Dates: start: 20140109
  2. HYDROMORPHONE [Concomitant]
     Active Substance: HYDROMORPHONE
     Dates: start: 20140102
  3. WELCHOL [Concomitant]
     Active Substance: COLESEVELAM HYDROCHLORIDE
     Dosage: TAKE BY MOUTH 2 TIMES DAILY.
     Route: 048
     Dates: start: 20121012
  4. BYETTA [Suspect]
     Active Substance: EXENATIDE
     Route: 065
     Dates: start: 20110324
  5. BYETTA [Suspect]
     Active Substance: EXENATIDE
     Route: 065
  6. METRONIDAZOLE. [Concomitant]
     Active Substance: METRONIDAZOLE
     Dates: start: 20140102
  7. HUMALOG [Concomitant]
     Active Substance: INSULIN LISPRO
     Dosage: 100 UNITS / ML
     Dates: start: 20150430
  8. DYNACIRC [Concomitant]
     Active Substance: ISRADIPINE
     Dosage: 2.5 MG. TAKE 2 CAPSULE DAILY AND 1 CAP IN THE EVENING
     Dates: start: 20110311
  9. LISINOPRIL. [Concomitant]
     Active Substance: LISINOPRIL
     Dates: start: 20150324
  10. FLUCONAZOLE. [Concomitant]
     Active Substance: FLUCONAZOLE
     Dates: start: 20150306
  11. ISRADIPINE. [Concomitant]
     Active Substance: ISRADIPINE
     Dates: start: 20140311
  12. HYDROCODON- ACETAMINOPHENE [Concomitant]
     Dosage: 5-325
     Dates: start: 20140201
  13. VANCOMYCIN HYDROCHLORIDE. [Concomitant]
     Active Substance: VANCOMYCIN HYDROCHLORIDE
     Dates: start: 20140102
  14. PANTOPRAZOLE SODIUM. [Concomitant]
     Active Substance: PANTOPRAZOLE SODIUM
     Dates: start: 20140102
  15. BYETTA [Suspect]
     Active Substance: EXENATIDE
     Route: 065
     Dates: start: 20070101, end: 20081231
  16. CREON [Concomitant]
     Active Substance: PANCRELIPASE AMYLASE\PANCRELIPASE LIPASE\PANCRELIPASE PROTEASE
     Dates: start: 20140201
  17. BUPROPION HCL [Concomitant]
     Active Substance: BUPROPION HYDROCHLORIDE
     Dates: start: 20131207
  18. CRESTOR [Concomitant]
     Active Substance: ROSUVASTATIN CALCIUM
     Dates: start: 20150324
  19. WARFARIN SODIUM. [Concomitant]
     Active Substance: WARFARIN SODIUM
     Dates: start: 20150324
  20. LEVEMIR [Concomitant]
     Active Substance: INSULIN DETEMIR
     Dosage: 100 UNITS/ ML
     Dates: start: 20150324

REACTIONS (6)
  - Ascites [Unknown]
  - Pancreatitis chronic [Unknown]
  - Bile duct obstruction [Unknown]
  - Metastases to lymph nodes [Unknown]
  - Jaundice cholestatic [Unknown]
  - Pancreatic carcinoma metastatic [Unknown]

NARRATIVE: CASE EVENT DATE: 201209
